FAERS Safety Report 11308139 (Version 1)
Quarter: 2015Q3

REPORT INFORMATION
  Report Type: Spontaneous
  Country: US (occurrence: US)
  Receive Date: 20150724
  Receipt Date: 20150724
  Transmission Date: 20151125
  Serious: No
  Sender: FDA-Public Use
  Company Number: US-ASTRAZENECA-2015SE69491

PATIENT
  Age: 90 Year
  Sex: Female
  Weight: 44 kg

DRUGS (2)
  1. SYMBICORT [Suspect]
     Active Substance: BUDESONIDE\FORMOTEROL FUMARATE DIHYDRATE
     Indication: BRONCHITIS
     Dosage: 1 DF; 1 PUFF TWO TIMES A DAY
     Route: 055
     Dates: start: 2014, end: 2014
  2. TUDORZA PRESSAIR [Suspect]
     Active Substance: ACLIDINIUM BROMIDE
     Indication: DYSPNOEA
     Dosage: 1 DF; 1 PUFF TWICE A DAY
     Route: 055
     Dates: start: 201506, end: 201507

REACTIONS (8)
  - Dysuria [Unknown]
  - Hypersensitivity [Unknown]
  - Temporomandibular joint syndrome [Unknown]
  - Vision blurred [Not Recovered/Not Resolved]
  - Dysphonia [Not Recovered/Not Resolved]
  - Rash [Unknown]
  - Nausea [Unknown]
  - Product use issue [Unknown]

NARRATIVE: CASE EVENT DATE: 2014
